FAERS Safety Report 7511817-9 (Version None)
Quarter: 2011Q2

REPORT INFORMATION
  Report Type: 
  Country: None (occurrence: None)
  Receive Date: 20110531
  Receipt Date: 20110524
  Transmission Date: 20111010
  Serious: Yes (Hospitalization, Other)
  Sender: FDA-Public Use
  Company Number: BR-PFIZER INC-2009304154

PATIENT
  Age: 71 Year
  Sex: Female

DRUGS (5)
  1. PANTOPRAZOL [Concomitant]
     Indication: GASTRITIS
     Dosage: UNK
     Dates: start: 20061201
  2. SERTRALINE [Concomitant]
     Dosage: UNK
     Dates: start: 20050101
  3. TIAFEN [Concomitant]
     Dosage: UNK
     Dates: start: 20080101
  4. LYRICA [Suspect]
     Dosage: 150 MG, 1X/DAY
     Route: 048
     Dates: start: 20070518
  5. CYMBALTA [Suspect]
     Indication: FIBROMYALGIA
     Dosage: UNK
     Dates: start: 20091001

REACTIONS (3)
  - DIARRHOEA [None]
  - FIBROMYALGIA [None]
  - GLAUCOMA [None]
